FAERS Safety Report 8339666 (Version 4)
Quarter: 2013Q1

REPORT INFORMATION
  Report Type: Spontaneous
  Country: US (occurrence: US)
  Receive Date: 20120117
  Receipt Date: 20130204
  Transmission Date: 20140127
  Serious: Yes (Hospitalization, Congenital Anomaly, Other)
  Sender: FDA-Public Use
  Company Number: US-PFIZER INC-2011308679

PATIENT
  Age: 1 Day
  Sex: Male
  Weight: 3 kg

DRUGS (17)
  1. ZOLOFT [Suspect]
     Indication: ANXIETY
     Dosage: UNK
     Route: 064
     Dates: start: 2004, end: 20070208
  2. ZOLOFT [Suspect]
     Indication: DEPRESSION
     Dosage: 50 MG, 1X/DAY
     Route: 064
     Dates: start: 20041102
  3. ZOLOFT [Suspect]
     Dosage: 100 MG, 1X/DAY
     Route: 064
     Dates: start: 20050711
  4. PRENATAL VITAMINS [Concomitant]
     Dosage: UNK
     Route: 064
  5. HYDROCODONE W/ACETAMINOPHEN [Concomitant]
     Dosage: UNK
     Route: 064
  6. OVCON [Concomitant]
     Dosage: UNK
     Route: 064
  7. DIAZEPAM [Concomitant]
     Dosage: UNK
     Route: 064
  8. CYCLOBENZAPRINE [Concomitant]
     Dosage: UNK
     Route: 064
  9. VICODIN [Concomitant]
     Dosage: UNK
     Route: 064
  10. TYLENOL [Concomitant]
     Dosage: UNK
     Route: 064
  11. BIAXIN XL [Concomitant]
     Dosage: UNK
     Route: 064
  12. PROMETHAZINE W/CODEINE [Concomitant]
     Dosage: UNK
     Route: 064
  13. NAPROXEN [Concomitant]
     Dosage: UNK
     Route: 064
  14. CARISOPRODOL [Concomitant]
     Dosage: UNK
     Route: 064
  15. CEPHALEXIN [Concomitant]
     Dosage: UNK
     Route: 064
  16. KEFLEX [Concomitant]
     Dosage: UNK
     Route: 064
  17. ROCEPHIN [Concomitant]
     Dosage: UNK
     Route: 064

REACTIONS (3)
  - Maternal exposure timing unspecified [Unknown]
  - Coarctation of the aorta [Unknown]
  - Cardiac failure congestive [Unknown]
